FAERS Safety Report 10612797 (Version 2)
Quarter: 2014Q4

REPORT INFORMATION
  Report Type: Spontaneous
  Country: US (occurrence: US)
  Receive Date: 20141127
  Receipt Date: 20141127
  Transmission Date: 20150529
  Serious: No
  Sender: FDA-Public Use
  Company Number: US-HORIZON-VIM-0081-2014

PATIENT
  Age: 28 Year
  Sex: Male

DRUGS (2)
  1. TRAMADOL [Concomitant]
     Active Substance: TRAMADOL
  2. VIMOVO [Suspect]
     Active Substance: ESOMEPRAZOLE MAGNESIUM\NAPROXEN
     Indication: ARTHROPATHY
     Dates: start: 20140821, end: 20140902

REACTIONS (1)
  - Drug screen false positive [Recovered/Resolved]

NARRATIVE: CASE EVENT DATE: 20140902
